FAERS Safety Report 20092688 (Version 1)
Quarter: 2021Q4

REPORT INFORMATION
  Report Type: Spontaneous
  Country: FR (occurrence: FR)
  Receive Date: 20211120
  Receipt Date: 20211120
  Transmission Date: 20220303
  Serious: Yes (Death, Other)
  Sender: FDA-Public Use
  Company Number: FR-AFSSAPS-AVLY20212817

PATIENT
  Age: 43 Year
  Sex: Male

DRUGS (4)
  1. SILDENAFIL [Suspect]
     Active Substance: SILDENAFIL
     Indication: Product used for unknown indication
     Dosage: DOSES ET FR?QUENCES CONSOMMATION INCONNUES
     Route: 065
  2. CANNABIS SATIVA SUBSP. INDICA TOP [Suspect]
     Active Substance: CANNABIS SATIVA SUBSP. INDICA TOP
     Indication: Product used for unknown indication
     Dosage: DOSES ET FR?QUENCES CONSOMMATION INCONNUES
     Route: 065
  3. BUTYROLACTONE [Suspect]
     Active Substance: BUTYROLACTONE
     Indication: Product used for unknown indication
     Dosage: DOSES ET FR?QUENCES CONSOMMATION INCONNUES
     Route: 048
  4. NEFOPAM HYDROCHLORIDE [Suspect]
     Active Substance: NEFOPAM HYDROCHLORIDE
     Indication: Product used for unknown indication
     Dosage: DOSES ET FR?QUENCES CONSOMMATION INCONNUES
     Route: 065

REACTIONS (2)
  - Cardio-respiratory arrest [Fatal]
  - Substance abuse [Fatal]

NARRATIVE: CASE EVENT DATE: 20211030
